FAERS Safety Report 8588775-1 (Version None)
Quarter: 2012Q3

REPORT INFORMATION
  Report Type: 
  Country: None (occurrence: None)
  Receive Date: 20120813
  Receipt Date: 20120809
  Transmission Date: 20120928
  Serious: Yes (Disabling)
  Sender: FDA-Public Use
  Company Number: PHHY2012JP063800

PATIENT

DRUGS (3)
  1. DIOVAN [Concomitant]
  2. DIOVAN HCT [Suspect]
     Indication: BLOOD PRESSURE INCREASED
     Dosage: 1 DF, UNK
     Route: 048
  3. ADALAT [Concomitant]

REACTIONS (2)
  - TINNITUS [None]
  - SUDDEN HEARING LOSS [None]
